FAERS Safety Report 25155100 (Version 3)
Quarter: 2025Q2

REPORT INFORMATION
  Report Type: Report from Study
  Country: US (occurrence: US)
  Receive Date: 20250403
  Receipt Date: 20250609
  Transmission Date: 20250716
  Serious: Yes (Hospitalization)
  Sender: SUNOVION
  Company Number: US-SMPA-2025SPA003557

PATIENT

DRUGS (2)
  1. ORGOVYX [Suspect]
     Active Substance: RELUGOLIX
     Indication: Prostate cancer
     Route: 048
     Dates: start: 20220625, end: 20220625
  2. ORGOVYX [Suspect]
     Active Substance: RELUGOLIX
     Dosage: 120 MG, QD
     Route: 048
     Dates: start: 20220626

REACTIONS (4)
  - Cardiac disorder [Unknown]
  - Urinary tract infection [Unknown]
  - Cystitis [Unknown]
  - Asthenia [Recovering/Resolving]
